FAERS Safety Report 5634729-4 (Version None)
Quarter: 2008Q1

REPORT INFORMATION
  Report Type: 
  Country: None (occurrence: None)
  Receive Date: 20080221
  Receipt Date: 20080221
  Transmission Date: 20080703
  Serious: Yes (Hospitalization)
  Sender: FDA-Public Use
  Company Number: None

PATIENT
  Age: 77 Year
  Sex: Male

DRUGS (3)
  1. WARFARIN SODIUM [Suspect]
     Indication: ATRIAL FIBRILLATION
     Dosage: 2.9MG  EVERY DAY  PO
     Route: 048
     Dates: start: 20070831
  2. WARFARIN SODIUM [Suspect]
     Indication: CEREBROVASCULAR ACCIDENT
     Dosage: 2.9MG  EVERY DAY  PO
     Route: 048
     Dates: start: 20070831
  3. WARFARIN SODIUM [Suspect]
     Indication: TRANSIENT ISCHAEMIC ATTACK
     Dosage: 2.9MG  EVERY DAY  PO
     Route: 048
     Dates: start: 20070831

REACTIONS (2)
  - EPISTAXIS [None]
  - HAEMATEMESIS [None]
